FAERS Safety Report 17517686 (Version 1)
Quarter: 2020Q1

REPORT INFORMATION
  Report Type: Other
  Country: AM (occurrence: AM)
  Receive Date: 20200309
  Receipt Date: 20200309
  Transmission Date: 20200409
  Serious: No
  Sender: FDA-Public Use
  Company Number: AM-NEPHRON PHARMACEUTICALS CORPORATION-2081413

PATIENT

DRUGS (2)
  1. IPRATROPIUM BROMIDE INHALATION SOLUTION, 0.02% [Suspect]
     Active Substance: IPRATROPIUM BROMIDE
     Indication: CHRONIC OBSTRUCTIVE PULMONARY DISEASE
     Route: 055
  2. ALBUTEROL. [Concomitant]
     Active Substance: ALBUTEROL
     Route: 055

REACTIONS (2)
  - Atrial fibrillation [None]
  - Ventricular tachycardia [None]
